FAERS Safety Report 19067141 (Version 1)
Quarter: 2021Q1

REPORT INFORMATION
  Report Type: Spontaneous
  Country: US (occurrence: US)
  Receive Date: 20210329
  Receipt Date: 20210329
  Transmission Date: 20210420
  Serious: Yes (Other)
  Sender: FDA-Public Use
  Company Number: US-SA-2021SA103060

PATIENT

DRUGS (1)
  1. ZANTAC [Suspect]
     Active Substance: RANITIDINE HYDROCHLORIDE

REACTIONS (9)
  - Surgery [Unknown]
  - Impaired quality of life [Unknown]
  - Anxiety [Unknown]
  - Pain [Unknown]
  - Movement disorder [Unknown]
  - Physical disability [Unknown]
  - Hospitalisation [Unknown]
  - Neoplasm malignant [Unknown]
  - Injury [Unknown]
